FAERS Safety Report 21840432 (Version 1)
Quarter: 2023Q1

REPORT INFORMATION
  Report Type: Spontaneous
  Country: RU (occurrence: RU)
  Receive Date: 20230110
  Receipt Date: 20230110
  Transmission Date: 20230418
  Serious: Yes (Hospitalization)
  Sender: FDA-Public Use
  Company Number: RU-drreddys-LIT/RUS/22/0159322

PATIENT
  Age: 14 Year
  Sex: Female

DRUGS (24)
  1. CETIRIZINE [Suspect]
     Active Substance: CETIRIZINE HYDROCHLORIDE
     Indication: Tracheitis
  2. CETIRIZINE [Suspect]
     Active Substance: CETIRIZINE HYDROCHLORIDE
     Indication: Bronchitis
  3. MEROPENEM [Suspect]
     Active Substance: MEROPENEM
     Indication: Bronchitis
  4. MEROPENEM [Suspect]
     Active Substance: MEROPENEM
     Indication: Tracheitis
  5. CLARITHROMYCIN [Suspect]
     Active Substance: CLARITHROMYCIN
     Indication: Bronchitis
  6. CLARITHROMYCIN [Suspect]
     Active Substance: CLARITHROMYCIN
     Indication: Tracheitis
  7. MARSHMALLOW [Suspect]
     Active Substance: ALCOHOL
     Indication: Bronchitis
  8. MARSHMALLOW [Suspect]
     Active Substance: ALCOHOL
     Indication: Tracheitis
  9. BIFIDOBACTERIUM BIFIDUM [Suspect]
     Active Substance: BIFIDOBACTERIUM BIFIDUM
     Indication: Bronchitis
  10. BIFIDOBACTERIUM BIFIDUM [Suspect]
     Active Substance: BIFIDOBACTERIUM BIFIDUM
     Indication: Tracheitis
  11. BUDESONIDE [Suspect]
     Active Substance: BUDESONIDE
     Indication: Bronchitis
  12. BUDESONIDE [Suspect]
     Active Substance: BUDESONIDE
     Indication: Tracheitis
  13. IPRATROPIUM BROMIDE [Suspect]
     Active Substance: IPRATROPIUM BROMIDE
     Indication: Bronchitis
  14. IPRATROPIUM BROMIDE [Suspect]
     Active Substance: IPRATROPIUM BROMIDE
     Indication: Tracheitis
  15. FENOTEROL [Suspect]
     Active Substance: FENOTEROL
     Indication: Bronchitis
  16. FENOTEROL [Suspect]
     Active Substance: FENOTEROL
     Indication: Tracheitis
  17. FLUCONAZOLE [Concomitant]
     Active Substance: FLUCONAZOLE
     Indication: Tracheitis
  18. AMOXICILLIN [Concomitant]
     Active Substance: AMOXICILLIN
     Indication: Antibiotic therapy
  19. FLUIMUCIL [Concomitant]
     Active Substance: ACETYLCYSTEINE
     Indication: Tracheitis
  20. Bromhexine hydrochloride + guaifenesin + salbutamol sulfate [Concomitant]
     Indication: Tracheitis
  21. AZITHROMYCIN [Concomitant]
     Active Substance: AZITHROMYCIN
     Indication: Tracheitis
  22. AZITHROMYCIN [Concomitant]
     Active Substance: AZITHROMYCIN
     Indication: Respiratory tract infection viral
     Dosage: REPEATED COURSE
  23. Vilprafen solutab [Concomitant]
     Indication: Tracheitis
     Dosage: 7 DAYS COURSE
  24. ACETYLCYSTEINE [Concomitant]
     Active Substance: ACETYLCYSTEINE
     Indication: Tracheitis

REACTIONS (7)
  - Condition aggravated [Unknown]
  - Coronavirus infection [Unknown]
  - Pneumonia [Unknown]
  - Foreign body in respiratory tract [Recovering/Resolving]
  - Bronchial obstruction [Recovering/Resolving]
  - Bronchitis [Recovering/Resolving]
  - Product use in unapproved indication [Unknown]

NARRATIVE: CASE EVENT DATE: 20220101
